FAERS Safety Report 15461083 (Version 2)
Quarter: 2019Q2

REPORT INFORMATION
  Report Type: Spontaneous
  Country: BE (occurrence: BE)
  Receive Date: 20181003
  Receipt Date: 20190529
  Transmission Date: 20190711
  Serious: Yes (Hospitalization)
  Sender: FDA-Public Use
  Company Number: BE-ELI_LILLY_AND_COMPANY-BE201810001008

PATIENT
  Age: 68 Year
  Sex: Male

DRUGS (1)
  1. PEMETREXED. [Suspect]
     Active Substance: PEMETREXED
     Indication: LUNG ADENOCARCINOMA STAGE IV
     Dosage: UNK UNK, UNKNOWN
     Route: 065

REACTIONS (4)
  - Immunodeficiency [Unknown]
  - Herpes zoster oticus [Unknown]
  - Varicella zoster virus infection [Unknown]
  - Pneumonia [Unknown]
